FAERS Safety Report 4874809-4 (Version None)
Quarter: 2006Q1

REPORT INFORMATION
  Report Type: 
  Country: None (occurrence: None)
  Receive Date: 20060109
  Receipt Date: 20051230
  Transmission Date: 20060701
  Serious: Yes (Death)
  Sender: FDA-Public Use
  Company Number: US-JNJFOC-20060100356

PATIENT
  Sex: Male
  Weight: 97.52 kg

DRUGS (9)
  1. REMICADE [Suspect]
     Indication: PSORIASIS
     Route: 042
  2. REMICADE [Suspect]
     Indication: RHEUMATOID ARTHRITIS
     Route: 042
  3. METHOTREXATE [Concomitant]
  4. FOLIC ACID [Concomitant]
  5. NORVASC [Concomitant]
     Indication: CARDIAC DISORDER
  6. TOPROL-XL [Concomitant]
     Indication: CARDIAC DISORDER
  7. NIASPAN [Concomitant]
     Indication: CARDIAC DISORDER
  8. LISINOPRIL [Concomitant]
  9. ZETIA [Concomitant]

REACTIONS (2)
  - MYOCARDIAL INFARCTION [None]
  - PULMONARY OEDEMA [None]
